FAERS Safety Report 25896384 (Version 2)
Quarter: 2025Q4

REPORT INFORMATION
  Report Type: Spontaneous
  Country: TR (occurrence: TR)
  Receive Date: 20251008
  Receipt Date: 20251013
  Transmission Date: 20260117
  Serious: Yes (Other)
  Sender: PFIZER
  Company Number: TR-MLMSERVICE-20251002-PI658236-00059-3

PATIENT
  Age: 16 Year
  Sex: Male

DRUGS (4)
  1. INFLIXIMAB [Suspect]
     Active Substance: INFLIXIMAB
     Indication: Chronic granulomatous disease
     Dosage: UNK
  2. PREDNISOLONE [Concomitant]
     Active Substance: PREDNISOLONE
     Indication: Inflammatory bowel disease
     Dosage: UNK
  3. AZATHIOPRINE [Concomitant]
     Active Substance: AZATHIOPRINE
     Indication: Inflammatory bowel disease
     Dosage: UNK
  4. MESALAMINE [Concomitant]
     Active Substance: MESALAMINE
     Indication: Inflammatory bowel disease
     Dosage: UNK

REACTIONS (2)
  - Iatrogenic Kaposi sarcoma [Unknown]
  - Off label use [Unknown]
